FAERS Safety Report 17636686 (Version 5)
Quarter: 2022Q3

REPORT INFORMATION
  Report Type: Spontaneous
  Country: US (occurrence: US)
  Receive Date: 20200407
  Receipt Date: 20220912
  Transmission Date: 20221027
  Serious: No
  Sender: FDA-Public Use
  Company Number: US-PFIZER INC-2019335757

PATIENT
  Age: 93 Year
  Sex: Female

DRUGS (1)
  1. XELJANZ XR [Suspect]
     Active Substance: TOFACITINIB CITRATE
     Dosage: 11 MG

REACTIONS (9)
  - Musculoskeletal stiffness [Unknown]
  - Pain [Unknown]
  - Tooth disorder [Unknown]
  - Oral pain [Unknown]
  - Bradykinesia [Unknown]
  - Arthritis [Unknown]
  - Hypoacusis [Unknown]
  - Memory impairment [Unknown]
  - Confusional state [Unknown]

NARRATIVE: CASE EVENT DATE: 20200401
